FAERS Safety Report 17872744 (Version 1)
Quarter: 2020Q2

REPORT INFORMATION
  Report Type: Spontaneous
  Country: NL (occurrence: GR)
  Receive Date: 20200608
  Receipt Date: 20200608
  Transmission Date: 20200714
  Serious: Yes (Other)
  Sender: FDA-Public Use
  Company Number: GR-FRESENIUS KABI-FK202005662

PATIENT
  Age: 29 Year
  Sex: Female

DRUGS (2)
  1. MEROPENEM (MANUFACTURER UNKNOWN) [Suspect]
     Active Substance: MEROPENEM
     Indication: STAPHYLOCOCCAL INFECTION
     Dosage: UNK
     Route: 065
  2. VANCOMYCIN (MANUFACTURER UNKNOWN) [Suspect]
     Active Substance: VANCOMYCIN
     Indication: STAPHYLOCOCCAL INFECTION
     Dosage: UNK
     Route: 065

REACTIONS (5)
  - Renal abscess [Recovered/Resolved]
  - Lung abscess [Recovered/Resolved]
  - Condition aggravated [Recovered/Resolved]
  - Bacteraemia [Recovered/Resolved]
  - Staphylococcal infection [Recovered/Resolved]
